FAERS Safety Report 5515625-X (Version None)
Quarter: 2007Q4

REPORT INFORMATION
  Report Type: 
  Country: None (occurrence: None)
  Receive Date: 20071113
  Receipt Date: 20070711
  Transmission Date: 20080405
  Serious: No
  Sender: FDA-Public Use
  Company Number: A0663320A

PATIENT
  Age: 57 Year
  Sex: Male

DRUGS (4)
  1. COREG [Suspect]
     Indication: CARDIOMYOPATHY
     Dosage: 6.25MG TWICE PER DAY
     Route: 048
     Dates: start: 20060522
  2. DILANTIN [Concomitant]
  3. LISINOPRIL [Concomitant]
  4. PEPCID [Concomitant]

REACTIONS (1)
  - WEIGHT INCREASED [None]
